FAERS Safety Report 8539678-X (Version None)
Quarter: 2012Q3

REPORT INFORMATION
  Report Type: 
  Country: None (occurrence: None)
  Receive Date: 20120726
  Receipt Date: 20110720
  Transmission Date: 20120928
  Serious: No
  Sender: FDA-Public Use
  Company Number: US-ASTRAZENECA-2007UW28986

PATIENT
  Age: 18932 Day
  Sex: Female
  Weight: 104.8 kg

DRUGS (22)
  1. TRAZODONE HCL [Concomitant]
     Dates: start: 19970101
  2. LITHIUM CARBONATE [Concomitant]
     Dates: start: 20070703
  3. SEROQUEL [Suspect]
     Indication: BIPOLAR DISORDER
     Dosage: 100 MG - 400 MG DAILY
     Route: 048
     Dates: start: 20060725
  4. LAMICTAL [Concomitant]
     Dates: start: 20070306
  5. NABUMETONE [Concomitant]
  6. ABILIFY [Concomitant]
     Dates: start: 20071206
  7. GEODON [Concomitant]
     Dates: start: 20080101
  8. PAXIL [Concomitant]
     Dates: start: 19960101, end: 19970101
  9. RISPERDAL [Concomitant]
     Dates: start: 20070601
  10. PROZAC [Concomitant]
     Dates: start: 20010101
  11. VYTORIN [Concomitant]
     Dosage: 10 MG - 20 MG DAILY
     Dates: start: 20070929
  12. CARDIZEM [Concomitant]
     Dosage: 180 MG - 240 MG DAILY
  13. GEODON [Concomitant]
     Dosage: 40 MG - 80 MG DAILY
     Dates: start: 20080201
  14. TRAZODONE HCL [Concomitant]
     Dates: start: 20070412
  15. METHYLPREDNISOLONE ACETATE [Concomitant]
  16. LUNESTA [Concomitant]
     Dates: start: 20060522
  17. PROZAC [Concomitant]
     Dosage: 40 MG-60 MG DAILY
     Dates: start: 20060522
  18. SEROQUEL [Suspect]
     Route: 048
     Dates: start: 20060901, end: 20070501
  19. RISPERDAL [Concomitant]
     Dates: start: 20070412
  20. LAMICTAL [Concomitant]
     Dates: start: 20060101, end: 20070101
  21. FLUOXETINE [Concomitant]
     Dates: start: 20070101
  22. TRAMADOL HYDROCHLORIDE [Concomitant]
     Dates: start: 20070802

REACTIONS (4)
  - DIABETES MELLITUS [None]
  - TYPE 2 DIABETES MELLITUS [None]
  - HYPERLIPIDAEMIA [None]
  - BLOOD CHOLESTEROL INCREASED [None]
